FAERS Safety Report 14015611 (Version 2)
Quarter: 2017Q3

REPORT INFORMATION
  Report Type: Spontaneous
  Country: CN (occurrence: CN)
  Receive Date: 20170927
  Receipt Date: 20170929
  Transmission Date: 20171128
  Serious: Yes (Hospitalization)
  Sender: FDA-Public Use
  Company Number: CN-JNJFOC-20170922890

PATIENT
  Age: 49 Year
  Sex: Male

DRUGS (2)
  1. PALIPERIDONE. [Suspect]
     Active Substance: PALIPERIDONE
     Indication: SOMATIC SYMPTOM DISORDER
     Route: 048
  2. VENLAFAXINE [Interacting]
     Active Substance: VENLAFAXINE HYDROCHLORIDE
     Indication: SOMATIC SYMPTOM DISORDER
     Route: 065

REACTIONS (6)
  - Rash [Recovered/Resolved]
  - Drug interaction [Recovering/Resolving]
  - Dystonia [Recovering/Resolving]
  - Product use in unapproved indication [Unknown]
  - Tardive dyskinesia [Recovering/Resolving]
  - Off label use [Unknown]
